FAERS Safety Report 13168871 (Version 1)
Quarter: 2017Q1

REPORT INFORMATION
  Report Type: Spontaneous
  Country: US (occurrence: US)
  Receive Date: 20170131
  Receipt Date: 20170131
  Transmission Date: 20170428
  Serious: Yes (Hospitalization, Other)
  Sender: FDA-Public Use
  Company Number: US-ASTRAZENECA-2017SE09011

PATIENT
  Sex: Female

DRUGS (3)
  1. IBRANCE [Suspect]
     Active Substance: PALBOCICLIB
     Indication: BREAST CANCER
     Route: 048
  2. TAMOXIFEN [Suspect]
     Active Substance: TAMOXIFEN
     Route: 048
  3. FASLODEX [Suspect]
     Active Substance: FULVESTRANT
     Indication: BREAST CANCER
     Route: 030

REACTIONS (24)
  - Atelectasis [Unknown]
  - Neuropathy peripheral [Unknown]
  - Metastases to liver [Unknown]
  - Malignant neoplasm progression [Unknown]
  - Pleural effusion [Unknown]
  - Dyspnoea exertional [Unknown]
  - Neuritis [Unknown]
  - Nausea [Unknown]
  - Gallbladder cancer [Unknown]
  - Helicobacter gastritis [Unknown]
  - Chest pain [Unknown]
  - Depression [Unknown]
  - Cellulitis [Unknown]
  - Skin fibrosis [Unknown]
  - Metastases to bone [Unknown]
  - Inflammation [Unknown]
  - Pulmonary fibrosis [Unknown]
  - Pneumonia [Unknown]
  - Vitamin B12 deficiency [Unknown]
  - Anxiety [Unknown]
  - Vomiting [Unknown]
  - Radiculopathy [Unknown]
  - Pain [Unknown]
  - Constipation [Unknown]
